FAERS Safety Report 14798716 (Version 3)
Quarter: 2018Q3

REPORT INFORMATION
  Report Type: Spontaneous
  Country: US (occurrence: US)
  Receive Date: 20180424
  Receipt Date: 20180709
  Transmission Date: 20181010
  Serious: Yes (Other)
  Sender: FDA-Public Use
  Company Number: US-PFIZER INC-2018166330

PATIENT
  Age: 78 Year
  Sex: Female
  Weight: 86 kg

DRUGS (3)
  1. IBRANCE [Suspect]
     Active Substance: PALBOCICLIB
     Indication: BREAST CANCER METASTATIC
     Dosage: 125 MG, CYCLIC (DAYS 1?21 Q28 DAYS)
     Route: 048
     Dates: start: 20180413
  2. IBRANCE [Suspect]
     Active Substance: PALBOCICLIB
     Dosage: 100 MG, CYCLIC (DAYS 1?21 Q28 DAYS)
     Route: 048
     Dates: start: 20180413
  3. IBRANCE [Suspect]
     Active Substance: PALBOCICLIB
     Dosage: 125 MG, CYCLIC (DAYS 1?21 Q28 DAYS)
     Route: 048
     Dates: start: 20180413

REACTIONS (8)
  - Rectal haemorrhage [Unknown]
  - Haematochezia [Unknown]
  - Dry eye [Unknown]
  - Bone pain [Unknown]
  - Constipation [Unknown]
  - Decreased appetite [Unknown]
  - Diarrhoea [Unknown]
  - Dry mouth [Unknown]

NARRATIVE: CASE EVENT DATE: 2018
